FAERS Safety Report 23811448 (Version 5)
Quarter: 2024Q3

REPORT INFORMATION
  Report Type: Spontaneous
  Country: DE (occurrence: DE)
  Receive Date: 20240503
  Receipt Date: 20240722
  Transmission Date: 20241016
  Serious: Yes (Hospitalization, Other)
  Sender: ALKEM
  Company Number: None

PATIENT
  Age: 91 Year
  Sex: Male
  Weight: 94 kg

DRUGS (19)
  1. IBUPROFEN [Suspect]
     Active Substance: IBUPROFEN
     Indication: Product used for unknown indication
     Dosage: 350 MILLIGRAM
     Route: 065
  2. IBUPROFEN [Suspect]
     Active Substance: IBUPROFEN
     Dosage: UNK
     Route: 065
     Dates: start: 20230519
  3. IBUPROFEN [Suspect]
     Active Substance: IBUPROFEN
     Dosage: UNK
     Route: 065
  4. IBUPROFEN [Suspect]
     Active Substance: IBUPROFEN
     Dosage: UNK
     Route: 065
     Dates: start: 20230519
  5. IBUPROFEN [Suspect]
     Active Substance: IBUPROFEN
     Dosage: UNK
     Route: 065
  6. PANTOPRAZOLE [Suspect]
     Active Substance: PANTOPRAZOLE
     Indication: Product used for unknown indication
     Dosage: UNK
     Route: 065
  7. ZOLPIDEM [Suspect]
     Active Substance: ZOLPIDEM TARTRATE
     Indication: Product used for unknown indication
     Dosage: 1 DOSAGE FORM
     Route: 065
  8. CEMIPLIMAB [Suspect]
     Active Substance: CEMIPLIMAB
     Indication: Squamous cell carcinoma of skin
     Dosage: 350 MILLIGRAM (EVERY 3 WEEK)
     Route: 042
     Dates: start: 20221014
  9. CEMIPLIMAB [Suspect]
     Active Substance: CEMIPLIMAB
     Dosage: UNK
     Route: 065
  10. CLEMASTINE FUMARATE [Suspect]
     Active Substance: CLEMASTINE FUMARATE
     Indication: Product used for unknown indication
     Dosage: 1 DOSAGE FORM
     Route: 065
  11. CLOBETASOL PROPIONATE [Suspect]
     Active Substance: CLOBETASOL PROPIONATE
     Indication: Product used for unknown indication
     Dosage: 1 DOSAGE FORM
     Route: 065
  12. CLOBETASOL PROPIONATE [Suspect]
     Active Substance: CLOBETASOL PROPIONATE
     Indication: Product used for unknown indication
     Dosage: UNK
     Route: 065
  13. DESLORATADINE [Suspect]
     Active Substance: DESLORATADINE
     Indication: Product used for unknown indication
     Dosage: 1 DOSAGE FORM
     Route: 065
  14. UREA [Suspect]
     Active Substance: UREA
     Indication: Product used for unknown indication
     Dosage: UNK
     Route: 065
     Dates: start: 20230519
  15. UREA [Suspect]
     Active Substance: UREA
     Dosage: 1 DOSAGE FORM
     Route: 065
     Dates: start: 20230519
  16. UREA [Suspect]
     Active Substance: UREA
     Dosage: 1 DOSAGE FORM
     Route: 065
  17. UREA [Suspect]
     Active Substance: UREA
     Dosage: UNK
  18. IBUPROFEN [Concomitant]
     Active Substance: IBUPROFEN
     Indication: Product used for unknown indication
     Dosage: UNK
     Route: 065
  19. Optiderm [Concomitant]
     Indication: Product used for unknown indication
     Dosage: UNK
     Route: 065
     Dates: start: 20230519

REACTIONS (2)
  - Dermatitis bullous [Recovered/Resolved]
  - Pemphigoid [Recovered/Resolved]

NARRATIVE: CASE EVENT DATE: 20230830
